FAERS Safety Report 9750013 (Version 3)
Quarter: 2015Q3

REPORT INFORMATION
  Report Type: Spontaneous
  Country: DE (occurrence: DE)
  Receive Date: 20131212
  Receipt Date: 20150730
  Transmission Date: 20151125
  Serious: No
  Sender: FDA-Public Use
  Company Number: DE-GILEAD-DE-CVT-090554

PATIENT
  Age: 75 Year
  Sex: Male

DRUGS (5)
  1. RANEXA [Suspect]
     Active Substance: RANOLAZINE
     Indication: ANGINA PECTORIS
     Route: 048
     Dates: start: 20090514, end: 20090611
  2. BELOC-ZOK [Concomitant]
     Active Substance: METOPROLOL SUCCINATE
  3. CODIOVAN [Concomitant]
     Active Substance: HYDROCHLOROTHIAZIDE\VALSARTAN
  4. ALLOPURINOL. [Concomitant]
     Active Substance: ALLOPURINOL
  5. FALITHROM [Concomitant]
     Active Substance: PHENPROCOUMON

REACTIONS (3)
  - Nausea [Recovered/Resolved]
  - Retching [Recovered/Resolved]
  - Dizziness [Recovered/Resolved]

NARRATIVE: CASE EVENT DATE: 200905
